FAERS Safety Report 6078294-9 (Version None)
Quarter: 2009Q1

REPORT INFORMATION
  Report Type: 
  Country: None (occurrence: None)
  Receive Date: 20090213
  Receipt Date: 20090204
  Transmission Date: 20090719
  Serious: Yes (Other)
  Sender: FDA-Public Use
  Company Number: US-PFIZER INC-2006029975

PATIENT
  Sex: Female
  Weight: 48.53 kg

DRUGS (3)
  1. ZOLOFT [Suspect]
     Indication: OBSESSIVE-COMPULSIVE DISORDER
     Route: 065
  2. FLUVOXAMINE [Suspect]
  3. ACETYLSALICYLIC ACID SRT [Concomitant]
     Route: 065

REACTIONS (19)
  - ACCIDENT [None]
  - AMNESIA [None]
  - BRADYCARDIA [None]
  - CONFUSIONAL STATE [None]
  - DEPRESSION [None]
  - DRUG DOSE OMISSION [None]
  - EMOTIONAL DISORDER [None]
  - FALL [None]
  - HEADACHE [None]
  - HEART RATE INCREASED [None]
  - INDIFFERENCE [None]
  - INSOMNIA [None]
  - LOSS OF CONSCIOUSNESS [None]
  - MUSCULOSKELETAL STIFFNESS [None]
  - NERVOUSNESS [None]
  - OBSESSIVE-COMPULSIVE DISORDER [None]
  - PSYCHIATRIC SYMPTOM [None]
  - PULSE ABSENT [None]
  - RESPIRATORY ARREST [None]
